FAERS Safety Report 8338748-9 (Version None)
Quarter: 2012Q2

REPORT INFORMATION
  Report Type: 
  Country: None (occurrence: None)
  Receive Date: 20120504
  Receipt Date: 20120424
  Transmission Date: 20120825
  Serious: Yes (Other)
  Sender: FDA-Public Use
  Company Number: TR-BAXTER-2012BAX004585

PATIENT
  Age: 57 Year
  Sex: Female

DRUGS (5)
  1. FLUOROURACIL [Suspect]
     Indication: BREAST CANCER
  2. CYCLOPHOSPHAMIDE [Suspect]
     Indication: BREAST CANCER
  3. ANASTROZOLE [Concomitant]
  4. ADRIAMYCIN PFS [Suspect]
     Indication: BREAST CANCER
  5. TRASTUZUMAB [Concomitant]

REACTIONS (1)
  - MULTIPLE MYELOMA [None]
